FAERS Safety Report 25019934 (Version 1)
Quarter: 2025Q1

REPORT INFORMATION
  Report Type: Other
  Country: SG (occurrence: SG)
  Receive Date: 20250227
  Receipt Date: 20250227
  Transmission Date: 20250408
  Serious: Yes (Life-Threatening, Hospitalization, Other)
  Sender: VISTAPHARM
  Company Number: SG-Vista Pharmaceuticals Inc.-2170358

PATIENT
  Age: 8 Year
  Sex: Female

DRUGS (7)
  1. SULFAMETHOXAZOLE\TRIMETHOPRIM [Suspect]
     Active Substance: SULFAMETHOXAZOLE\TRIMETHOPRIM
     Indication: Osteomyelitis
  2. SULFAMETHOXAZOLE\TRIMETHOPRIM [Suspect]
     Active Substance: SULFAMETHOXAZOLE\TRIMETHOPRIM
     Indication: Salmonella bacteraemia
  3. DOXYCYCLINE [Suspect]
     Active Substance: DOXYCYCLINE
  4. METHYLPREDNISOLONE [Suspect]
     Active Substance: METHYLPREDNISOLONE
  5. MICAFUNGIN [Suspect]
     Active Substance: MICAFUNGIN SODIUM
  6. METRONIDAZOLE [Suspect]
     Active Substance: METRONIDAZOLE
  7. CEFTRIAXONE [Suspect]
     Active Substance: CEFTRIAXONE

REACTIONS (11)
  - Acute respiratory distress syndrome [Recovered/Resolved]
  - Product use in unapproved indication [Unknown]
  - Candida infection [Recovered/Resolved]
  - Drug hypersensitivity [Recovered/Resolved]
  - Mediastinitis [Recovered/Resolved]
  - Subcutaneous emphysema [Recovered/Resolved]
  - Pneumonitis [Recovered/Resolved]
  - Pneumomediastinum [Recovered/Resolved]
  - Pneumothorax [Recovered/Resolved]
  - Respiratory failure [Recovered/Resolved]
  - Pulmonary toxicity [Recovered/Resolved]
